FAERS Safety Report 9877010 (Version 1)
Quarter: 2014Q1

REPORT INFORMATION
  Report Type: Spontaneous
  Country: US (occurrence: US)
  Receive Date: 20140206
  Receipt Date: 20140206
  Transmission Date: 20141002
  Serious: No
  Sender: FDA-Public Use
  Company Number: US-PFIZER INC-2014033849

PATIENT
  Age: 56 Year
  Sex: Male
  Weight: 113.38 kg

DRUGS (1)
  1. GABAPENTIN [Suspect]
     Indication: GUILLAIN-BARRE SYNDROME
     Dosage: 600 MG, 3X/DAY
     Route: 048
     Dates: start: 201312, end: 20140203

REACTIONS (1)
  - Drug ineffective for unapproved indication [Unknown]
